FAERS Safety Report 6775089-5 (Version None)
Quarter: 2010Q2

REPORT INFORMATION
  Report Type: 
  Country: None (occurrence: None)
  Receive Date: 20100617
  Receipt Date: 20100609
  Transmission Date: 20101027
  Serious: Yes (Other)
  Sender: FDA-Public Use
  Company Number: B0660430A

PATIENT
  Age: 3 Year
  Sex: Male

DRUGS (1)
  1. SERETIDE [Suspect]
     Indication: ASTHMA
     Route: 055
     Dates: start: 20100101, end: 20100501

REACTIONS (3)
  - ASTHMA [None]
  - OFF LABEL USE [None]
  - PRODUCT LOT NUMBER ISSUE [None]
